FAERS Safety Report 9809042 (Version 1)
Quarter: 2014Q1

REPORT INFORMATION
  Report Type: Spontaneous
  Country: US (occurrence: US)
  Receive Date: 20140110
  Receipt Date: 20140110
  Transmission Date: 20141002
  Serious: Yes (Other)
  Sender: FDA-Public Use
  Company Number: PHEH2014US000501

PATIENT
  Sex: Female

DRUGS (10)
  1. TRILEPTAL [Suspect]
     Indication: CONVULSION
     Dosage: UNK UKN, UNK
  2. TRILEPTAL [Suspect]
     Indication: AURA
     Dosage: 600MG TABLETS THREE TIMES PER DAY
  3. TRILEPTAL [Suspect]
     Dosage: BREAKING THE TABLETSOF 600 MG IN HALF TO 300 MG, THREE TIMES A DAY
  4. NEXIUM//ESOMEPRAZOLE SODIUM [Suspect]
     Dosage: UNK UKN, UNK
  5. ELMIRON [Concomitant]
     Dosage: UNK UKN, UNK
  6. LANSOPRAZOLE [Concomitant]
     Dosage: UNK UKN, UNK
  7. VITAMIN B2 [Concomitant]
     Dosage: UNK UKN, UNK
  8. NAPROXEN [Concomitant]
     Dosage: UNK UKN, UNK
  9. ESTRADIOL [Concomitant]
     Dosage: UNK UKN, UNK
  10. VOMIGO [Concomitant]
     Dosage: UNK UKN, UNK

REACTIONS (10)
  - Cystitis [Unknown]
  - Convulsion [Unknown]
  - Dysarthria [Unknown]
  - Balance disorder [Unknown]
  - Oropharyngeal pain [Unknown]
  - Insomnia [Unknown]
  - Oral pain [Unknown]
  - Blood sodium decreased [Unknown]
  - Fatigue [Unknown]
  - Wrong technique in drug usage process [Unknown]
